FAERS Safety Report 4354322-3 (Version None)
Quarter: 2004Q2

REPORT INFORMATION
  Report Type: 
  Country: None (occurrence: None)
  Receive Date: 20040503
  Receipt Date: 20040422
  Transmission Date: 20050107
  Serious: Yes (Other)
  Sender: FDA-Public Use
  Company Number: 2004210540DE

PATIENT
  Sex: Female

DRUGS (1)
  1. MEDROXYPROGESTERONE ACETATE [Suspect]
     Dosage: FIRST INJECTION, INTRAMUSCULAR
     Route: 030
     Dates: start: 20021004, end: 20021004

REACTIONS (2)
  - HYPERHIDROSIS [None]
  - METRORRHAGIA [None]
